FAERS Safety Report 5644401-2 (Version None)
Quarter: 2008Q1

REPORT INFORMATION
  Report Type: 
  Country: None (occurrence: None)
  Receive Date: 20080229
  Receipt Date: 20080219
  Transmission Date: 20080703
  Serious: Yes (Other)
  Sender: FDA-Public Use
  Company Number: NL-AMGEN-US264704

PATIENT
  Sex: Female

DRUGS (2)
  1. ENBREL [Suspect]
     Indication: DRUG USE FOR UNKNOWN INDICATION
     Dosage: UNK
     Route: 065
     Dates: end: 20071224
  2. PREDNISONE TAB [Suspect]
     Route: 065

REACTIONS (5)
  - BURNS THIRD DEGREE [None]
  - COMA [None]
  - EPILEPSY [None]
  - IMPAIRED HEALING [None]
  - INFLAMMATION OF WOUND [None]
